FAERS Safety Report 4564893-X (Version None)
Quarter: 2005Q1

REPORT INFORMATION
  Report Type: 
  Country: None (occurrence: None)
  Receive Date: 20050118
  Receipt Date: 20040709
  Transmission Date: 20050727
  Serious: Yes (Other)
  Sender: FDA-Public Use
  Company Number: HQWYE183916JUL04

PATIENT
  Sex: Female

DRUGS (6)
  1. PREMPRO [Suspect]
  2. ESTROPIPATE [Suspect]
  3. MEDROXYPROGESTERONE ACETATE [Suspect]
  4. OGEN [Suspect]
  5. PROVERA [Suspect]
  6. PREMARIN [Concomitant]

REACTIONS (1)
  - BREAST CANCER [None]
